FAERS Safety Report 4560280-9 (Version None)
Quarter: 2005Q1

REPORT INFORMATION
  Report Type: 
  Country: None (occurrence: None)
  Receive Date: 20050120
  Receipt Date: 20050120
  Transmission Date: 20050727
  Serious: Yes (Hospitalization, Other)
  Sender: FDA-Public Use
  Company Number: None

PATIENT
  Age: 83 Year
  Sex: Male
  Weight: 64.5 kg

DRUGS (17)
  1. WARFARIN SODIUM [Suspect]
     Indication: ATRIAL FIBRILLATION
     Dosage: 5 MG PO DAILY CHRONIC
     Route: 048
  2. ASPIRIN [Suspect]
     Indication: ATRIAL FIBRILLATION
     Dosage: 81 MG PO DAILY CHRONIC
     Route: 048
  3. DILTIAZEM [Concomitant]
  4. LASIX [Concomitant]
  5. INSULIN [Concomitant]
  6. COUMADIN [Concomitant]
  7. ZYREXA [Concomitant]
  8. CLARITIN [Concomitant]
  9. POTASSIUM CHLORIDE [Concomitant]
  10. ALPHAGAN [Concomitant]
  11. GEMFIBROZIL [Concomitant]
  12. NARDIL [Concomitant]
  13. FLUNISOLIDE NASAL SPRAY [Concomitant]
  14. ... [Concomitant]
  15. LEXAPRO [Concomitant]
  16. ASPIRIN [Concomitant]
  17. REMERON [Concomitant]

REACTIONS (5)
  - ANAEMIA [None]
  - DIVERTICULUM INTESTINAL HAEMORRHAGIC [None]
  - HYPOTENSION [None]
  - INTERNATIONAL NORMALISED RATIO INCREASED [None]
  - LOWER GASTROINTESTINAL HAEMORRHAGE [None]
